FAERS Safety Report 6433125-X (Version None)
Quarter: 2009Q4

REPORT INFORMATION
  Report Type: 
  Country: None (occurrence: None)
  Receive Date: 20091109
  Receipt Date: 20091028
  Transmission Date: 20100525
  Serious: Yes (Other)
  Sender: FDA-Public Use
  Company Number: US-PFIZER INC-2009289995

PATIENT
  Sex: Female

DRUGS (1)
  1. DETROL [Suspect]
     Dosage: UNK
     Dates: start: 20090601, end: 20090627

REACTIONS (4)
  - CONFUSIONAL STATE [None]
  - CONSTIPATION [None]
  - LOSS OF CONSCIOUSNESS [None]
  - VISION BLURRED [None]
